FAERS Safety Report 24633257 (Version 2)
Quarter: 2025Q1

REPORT INFORMATION
  Report Type: Spontaneous
  Country: US (occurrence: US)
  Receive Date: 20241118
  Receipt Date: 20250109
  Transmission Date: 20250408
  Serious: No
  Sender: SANOFI AVENTIS
  Company Number: US-SANOFI-02292932

PATIENT
  Age: 61 Year
  Sex: Female

DRUGS (1)
  1. DUPIXENT [Suspect]
     Active Substance: DUPILUMAB
     Indication: Asthma
     Dosage: 300 MG, QOW
     Route: 058
     Dates: start: 20241029

REACTIONS (7)
  - Muscle spasms [Recovering/Resolving]
  - Product dispensing error [Unknown]
  - Muscular weakness [Recovered/Resolved]
  - Pain [Recovering/Resolving]
  - Myalgia [Recovered/Resolved]
  - Injection site pain [Recovering/Resolving]
  - Incorrect dose administered [Unknown]

NARRATIVE: CASE EVENT DATE: 20241029
